FAERS Safety Report 7337214-7 (Version None)
Quarter: 2011Q1

REPORT INFORMATION
  Report Type: 
  Country: None (occurrence: None)
  Receive Date: 20110308
  Receipt Date: 20110302
  Transmission Date: 20110831
  Serious: Yes (Hospitalization, Other)
  Sender: FDA-Public Use
  Company Number: US-PFIZER INC-2010175742

PATIENT
  Sex: Female

DRUGS (5)
  1. CHANTIX [Suspect]
     Indication: SMOKING CESSATION THERAPY
     Dosage: 0.5 MG AND 1 MG
     Dates: start: 20080209, end: 20080201
  2. CITALOPRAM [Concomitant]
     Indication: DEPRESSION
     Dosage: UNK
     Dates: start: 20070101, end: 20080501
  3. HYDROCODONE [Concomitant]
     Indication: PAIN
     Dosage: UNK
     Dates: start: 20050401, end: 20100101
  4. FLEXERIL [Concomitant]
     Indication: MUSCLE SPASMS
     Dosage: UNK
     Dates: start: 20060301
  5. DIAZEPAM [Concomitant]
     Dosage: UNK
     Dates: start: 20071001, end: 20110201

REACTIONS (8)
  - AGGRESSION [None]
  - MENTAL DISORDER [None]
  - INTENTIONAL OVERDOSE [None]
  - HOMICIDAL IDEATION [None]
  - SUICIDE ATTEMPT [None]
  - DEPRESSION [None]
  - PANIC ATTACK [None]
  - ANXIETY [None]
